FAERS Safety Report 7752331-5 (Version None)
Quarter: 2011Q3

REPORT INFORMATION
  Report Type: 
  Country: None (occurrence: None)
  Receive Date: 20110915
  Receipt Date: 20110901
  Transmission Date: 20111222
  Serious: Yes (Other)
  Sender: FDA-Public Use
  Company Number: US-ELI_LILLY_AND_COMPANY-US201106006367

PATIENT
  Sex: Female
  Weight: 57.3 kg

DRUGS (8)
  1. ACLOVIR [Concomitant]
  2. TRAZODONE HCL [Concomitant]
  3. ACYCLOVIR [Concomitant]
  4. CYMBALTA [Suspect]
     Indication: FIBROMYALGIA
     Dosage: 60 MG, QD
     Dates: start: 20040101
  5. ADVAIR DISKUS 100/50 [Concomitant]
  6. LEVOTHYROXINE SODIUM [Concomitant]
  7. DIAZEPAM [Concomitant]
  8. TOPAMAX [Concomitant]

REACTIONS (5)
  - ORTHOSTATIC HYPOTENSION [None]
  - RENAL IMPAIRMENT [None]
  - POLLAKIURIA [None]
  - GLAUCOMA [None]
  - URINARY TRACT INFECTION [None]
